FAERS Safety Report 18734992 (Version 5)
Quarter: 2021Q2

REPORT INFORMATION
  Report Type: Report from Study
  Country: AR (occurrence: AR)
  Receive Date: 20210113
  Receipt Date: 20210521
  Transmission Date: 20210717
  Serious: Yes (Hospitalization)
  Sender: FDA-Public Use
  Company Number: NVSC2021AR002552

PATIENT
  Age: 32 Year
  Sex: Female

DRUGS (3)
  1. TASIGNA [Suspect]
     Active Substance: NILOTINIB
     Indication: CHRONIC MYELOID LEUKAEMIA
     Dosage: 200 MG, TID
     Route: 048
     Dates: start: 20200705
  2. TASIGNA [Suspect]
     Active Substance: NILOTINIB
     Dosage: 800 MG, QD
     Route: 048
     Dates: start: 20200805
  3. TASIGNA [Suspect]
     Active Substance: NILOTINIB
     Dosage: 400 MG, BID
     Route: 048
     Dates: start: 20200805

REACTIONS (29)
  - Haematoma [Unknown]
  - Fatigue [Unknown]
  - Platelet count increased [Unknown]
  - Spinal pain [Unknown]
  - Pyrexia [Unknown]
  - Muscle tightness [Unknown]
  - Ill-defined disorder [Unknown]
  - Infection [Recovering/Resolving]
  - White blood cell count increased [Unknown]
  - Pain [Unknown]
  - Insomnia [Unknown]
  - Decreased appetite [Unknown]
  - Discomfort [Unknown]
  - Nausea [Unknown]
  - Lipoma [Unknown]
  - Abdominal pain upper [Unknown]
  - General physical health deterioration [Unknown]
  - Weight decreased [Unknown]
  - Vomiting [Unknown]
  - Abdominal distension [Unknown]
  - Chest discomfort [Unknown]
  - Dizziness [Unknown]
  - Hypokinesia [Unknown]
  - Abdominal discomfort [Unknown]
  - Product dose omission issue [Unknown]
  - Spleen disorder [Unknown]
  - Platelet count decreased [Unknown]
  - Malaise [Unknown]
  - Inappropriate schedule of product administration [Unknown]

NARRATIVE: CASE EVENT DATE: 20201001
